FAERS Safety Report 22220335 (Version 1)
Quarter: 2023Q2

REPORT INFORMATION
  Report Type: Spontaneous
  Country: US (occurrence: US)
  Receive Date: 20230417
  Receipt Date: 20230417
  Transmission Date: 20230722
  Serious: No
  Sender: FDA-Public Use
  Company Number: US-BRISTOL-MYERS SQUIBB COMPANY-2023-053054

PATIENT
  Age: 80 Year
  Sex: Male
  Weight: 74.84 kg

DRUGS (1)
  1. REVLIMID [Suspect]
     Active Substance: LENALIDOMIDE
     Indication: Plasma cell myeloma
     Dosage: FREQ: ONE CAPSULE DAILY FOR 21 DAYS WITH 7 DAYS OFF

REACTIONS (2)
  - Dysgeusia [Unknown]
  - Fatigue [Unknown]

NARRATIVE: CASE EVENT DATE: 20230201
